FAERS Safety Report 10195441 (Version 2)
Quarter: 2014Q2

REPORT INFORMATION
  Report Type: Spontaneous
  Country: US (occurrence: US)
  Receive Date: 20140526
  Receipt Date: 20140620
  Transmission Date: 20141212
  Serious: No
  Sender: FDA-Public Use
  Company Number: US-B.I. PHARMACEUTICALS,INC./RIDGEFIELD-2014-BI-21280BP

PATIENT
  Age: 61 Year
  Sex: Female
  Weight: 90 kg

DRUGS (12)
  1. SPIRIVA [Suspect]
     Indication: CHRONIC OBSTRUCTIVE PULMONARY DISEASE
     Dosage: 18 MCG
     Route: 055
     Dates: start: 20130206
  2. ISOBED MDER [Concomitant]
     Indication: CARDIAC DISORDER
     Dosage: 30 MG
     Route: 048
  3. CARDIVIDOL [Concomitant]
     Indication: CARDIAC DISORDER
     Dosage: 12.5 MG
     Route: 048
  4. ASPIRIN [Concomitant]
     Indication: CARDIAC DISORDER
     Dosage: 325 MG
     Route: 048
  5. FISH OIL [Concomitant]
     Indication: CARDIAC DISORDER
     Dosage: 4000 U
     Route: 048
  6. LIPITOR [Concomitant]
     Indication: PROPHYLAXIS
     Dosage: 40 MG
     Route: 048
  7. RANITIDINE [Concomitant]
     Indication: ANTACID THERAPY
     Dosage: 150 MG
     Route: 048
  8. RANITIDINE [Concomitant]
     Indication: GASTROOESOPHAGEAL REFLUX DISEASE
  9. DOCUSATE SODIUM [Concomitant]
     Indication: CONSTIPATION
     Route: 048
  10. PROVENTIL ALBUTEROL SULFATE [Concomitant]
     Indication: DYSPNOEA
     Route: 055
  11. PROAIR HFA [Concomitant]
     Indication: CHRONIC OBSTRUCTIVE PULMONARY DISEASE
     Dosage: 8 PUF
     Route: 055
  12. NEBULIZER [Concomitant]
     Indication: CHRONIC OBSTRUCTIVE PULMONARY DISEASE
     Dosage: DOSE PER APPLICATION: 1 VIAL; DAILY DOSE: 2 VIALS
     Route: 055

REACTIONS (3)
  - Dyspnoea [Recovered/Resolved]
  - Product quality issue [Recovered/Resolved]
  - Product quality issue [Recovered/Resolved]
